FAERS Safety Report 4844620-9 (Version None)
Quarter: 2005Q4

REPORT INFORMATION
  Report Type: 
  Country: None (occurrence: None)
  Receive Date: 20051130
  Receipt Date: 20051130
  Transmission Date: 20060501
  Serious: No
  Sender: FDA-Public Use
  Company Number: None

PATIENT
  Age: 55 Year
  Sex: Female
  Weight: 54.4316 kg

DRUGS (8)
  1. GEMZAR [Suspect]
     Indication: OVARIAN CANCER
     Dosage: 1500 MG Q 3 WK OUT OF 4 WKS
     Dates: start: 20050805
  2. GEMZAR [Suspect]
     Indication: OVARIAN CANCER
     Dosage: 1500 MG Q 3 WK OUT OF 4 WKS
     Dates: start: 20050812
  3. GEMZAR [Suspect]
     Indication: OVARIAN CANCER
     Dosage: 1500 MG Q 3 WK OUT OF 4 WKS
     Dates: start: 20050902
  4. GEMZAR [Suspect]
     Indication: OVARIAN CANCER
     Dosage: 1500 MG Q 3 WK OUT OF 4 WKS
     Dates: start: 20050909
  5. GEMZAR [Suspect]
     Indication: OVARIAN CANCER
     Dosage: 1500 MG Q 3 WK OUT OF 4 WKS
     Dates: start: 20050930
  6. GEMZAR [Suspect]
     Indication: OVARIAN CANCER
     Dosage: 1500 MG Q 3 WK OUT OF 4 WKS
     Dates: start: 20051007
  7. GEMZAR [Suspect]
  8. ARANESP [Concomitant]

REACTIONS (4)
  - NEUROPATHY PERIPHERAL [None]
  - SKIN DISCOLOURATION [None]
  - THROMBOCYTOPENIA [None]
  - VASCULITIS [None]
